FAERS Safety Report 5634517-9 (Version None)
Quarter: 2008Q1

REPORT INFORMATION
  Report Type: 
  Country: None (occurrence: None)
  Receive Date: 20080222
  Receipt Date: 20080215
  Transmission Date: 20080703
  Serious: No
  Sender: FDA-Public Use
  Company Number: US-BAXTER-2008BH001437

PATIENT
  Age: 36 Year
  Sex: Female
  Weight: 57 kg

DRUGS (2)
  1. HEPARIN SODIUM [Suspect]
     Indication: GENE MUTATION
     Route: 058
     Dates: start: 20080125
  2. FOLGARD [Concomitant]
     Indication: GENE MUTATION
     Dosage: DOSE UNIT:UNKNOWN
     Route: 048

REACTIONS (5)
  - DIARRHOEA [None]
  - FEELING HOT [None]
  - HEADACHE [None]
  - NASAL DISCOMFORT [None]
  - SNEEZING [None]
